FAERS Safety Report 25362263 (Version 1)
Quarter: 2025Q2

REPORT INFORMATION
  Report Type: Spontaneous
  Country: CH (occurrence: CH)
  Receive Date: 20250527
  Receipt Date: 20250527
  Transmission Date: 20250717
  Serious: Yes (Other)
  Sender: BAYER HEALTHCARE PHARMACEUTICALS INC.
  Company Number: None

PATIENT
  Age: 81 Year
  Sex: Male
  Weight: 93 kg

DRUGS (21)
  1. GADOBUTROL [Interacting]
     Active Substance: GADOBUTROL
     Route: 042
     Dates: start: 20250426, end: 20250426
  2. CANDESARTAN [Suspect]
     Active Substance: CANDESARTAN
     Route: 048
     Dates: start: 20250427, end: 20250428
  3. LEVETIRACETAM [Suspect]
     Active Substance: LEVETIRACETAM
     Dosage: 500 MG, 12 HRS
     Route: 048
     Dates: start: 20250427
  4. IOMERON [Suspect]
     Active Substance: IOMEPROL
     Dosage: ADMINISTERED ONCE
     Route: 042
     Dates: start: 20250426, end: 20250426
  5. TORSEMIDE [Interacting]
     Active Substance: TORSEMIDE
     Dosage: 1 TABLET CONTAINS 10MG OF TORASEMID, 4 TABLETS ARE ADMINISTERED AT ONCE IN THE MORNING
     Route: 048
     Dates: end: 20250428
  6. AMLODIPINE BESYLATE\OLMESARTAN MEDOXOMIL [Interacting]
     Active Substance: AMLODIPINE BESYLATE\OLMESARTAN MEDOXOMIL
     Dosage: ONE TABLET CONTAINS 20MG OLMESARTANMEDOXOMIL AND 5MG AMLODIPIN, HALF A TABLET IS ADMINISTERED PER DA
     Route: 048
     Dates: end: 20250426
  7. METOLAZONE [Interacting]
     Active Substance: METOLAZONE
     Dosage: 1 TABLET CONTAINS 5MG METOLAZON, HALF A TABLET IS GIVEN PER DAY
     Route: 048
     Dates: end: 20250428
  8. ALENDRONATE SODIUM [Concomitant]
     Active Substance: ALENDRONATE SODIUM
     Route: 048
     Dates: end: 20250427
  9. FOLIC ACID [Concomitant]
     Active Substance: FOLIC ACID
     Route: 048
  10. ALLOPURINOL [Concomitant]
     Active Substance: ALLOPURINOL
     Dosage: 1 TABLET CONTAINS 300G ALLOPURINOL, HALF A TABLET IS ADMINISTERED PER DAY
     Route: 048
     Dates: end: 20250428
  11. ELIQUIS [Concomitant]
     Active Substance: APIXABAN
     Dosage: ONE TABLET CONTAINS 5MG APIXABAN, HALF A TABLET IS ADMINISTERED EVERY 12 HOURS
     Route: 048
  12. CALCIUM\CHOLECALCIFEROL [Concomitant]
     Active Substance: CALCIUM\CHOLECALCIFEROL
     Dosage: 1 DOSAGE FORM CONTAINS 500MG CALCIUM AND 800 UNITS CHOLECALCIFEROL
     Route: 048
     Dates: end: 202504
  13. DAPAGLIFLOZIN [Concomitant]
     Active Substance: DAPAGLIFLOZIN
     Route: 048
  14. IPRATROPIUM [Concomitant]
     Active Substance: IPRATROPIUM
     Route: 055
     Dates: start: 20250427
  15. AMLODIPINE BESYLATE [Concomitant]
     Active Substance: AMLODIPINE BESYLATE
     Route: 048
     Dates: start: 20250427, end: 20250429
  16. ARANESP [Concomitant]
     Active Substance: DARBEPOETIN ALFA
     Dates: end: 20250426
  17. NEXIUM [Concomitant]
     Active Substance: ESOMEPRAZOLE MAGNESIUM
     Dosage: 40 MG, QD
     Route: 048
  18. DAFALGAN [Concomitant]
     Active Substance: ACETAMINOPHEN
     Dosage: 400 MG, QD
     Route: 048
     Dates: end: 20250426
  19. DAPAGLIFLOZIN [Concomitant]
     Active Substance: DAPAGLIFLOZIN
     Route: 048
     Dates: start: 20250427, end: 20250428
  20. ALBUTEROL [Concomitant]
     Active Substance: ALBUTEROL
     Route: 055
     Dates: start: 20250427
  21. NOVORAPID [Concomitant]
     Active Substance: INSULIN ASPART
     Route: 058
     Dates: start: 20250427, end: 20250427

REACTIONS (1)
  - Acute kidney injury [Not Recovered/Not Resolved]

NARRATIVE: CASE EVENT DATE: 20250428
